FAERS Safety Report 19985291 (Version 1)
Quarter: 2021Q4

REPORT INFORMATION
  Report Type: Spontaneous
  Country: US (occurrence: US)
  Receive Date: 20211022
  Receipt Date: 20211022
  Transmission Date: 20220303
  Serious: Yes (Death, Other)
  Sender: FDA-Public Use
  Company Number: None

PATIENT
  Age: 75 Year
  Sex: Male
  Weight: 65.25 kg

DRUGS (1)
  1. PRAVACHOL [Suspect]
     Active Substance: PRAVASTATIN SODIUM
     Indication: Blood cholesterol increased
     Dosage: ?          QUANTITY:1 TABLET(S);
     Route: 048

REACTIONS (6)
  - Disturbance in attention [None]
  - Impulsive behaviour [None]
  - Heart rate decreased [None]
  - Diabetes mellitus [None]
  - Personality change [None]
  - Product substitution issue [None]

NARRATIVE: CASE EVENT DATE: 20161031
